FAERS Safety Report 20480085 (Version 1)
Quarter: 2022Q1

REPORT INFORMATION
  Report Type: Report from Study
  Country: FR (occurrence: FR)
  Receive Date: 20220216
  Receipt Date: 20220216
  Transmission Date: 20220423
  Serious: Yes (Other)
  Sender: FDA-Public Use
  Company Number: FR-SERVIER-S21013251

PATIENT

DRUGS (13)
  1. PEGASPARGASE [Suspect]
     Active Substance: PEGASPARGASE
     Indication: Acute lymphocytic leukaemia
     Dosage: 1350 IU, D12
     Route: 042
     Dates: start: 20190922, end: 20190922
  2. PREDNISONE [Suspect]
     Active Substance: PREDNISONE
     Indication: Acute lymphocytic leukaemia
     Dosage: 30 MG, D1 TO D8
     Route: 042
     Dates: start: 20190911, end: 20190917
  3. VINCRISTINE SULFATE [Suspect]
     Active Substance: VINCRISTINE SULFATE
     Indication: Acute lymphocytic leukaemia
     Dosage: 0.8 MG, D8, D15
     Route: 042
     Dates: start: 20190918
  4. DAUNORUBICIN HYDROCHLORIDE [Suspect]
     Active Substance: DAUNORUBICIN HYDROCHLORIDE
     Indication: Acute lymphocytic leukaemia
     Dosage: 17 MG, D8, D15
     Route: 042
     Dates: start: 20190918
  5. TN UNSPECIFIED [Concomitant]
     Indication: Pain
     Dosage: 720 MG, IV
     Route: 042
     Dates: start: 20190911
  6. TN UNSPECIFIED [Concomitant]
     Indication: Pyrexia
     Dosage: 720 MG, IT
     Route: 037
     Dates: start: 20190911
  7. TN UNSPECIFIED [Concomitant]
     Indication: Anxiety
     Dosage: 6 MG
     Route: 048
     Dates: start: 20190911
  8. TN UNSPECIFIED [Concomitant]
     Indication: Sleep disorder
  9. TN UNSPECIFIED [Concomitant]
     Indication: Bone demineralisation
     Dosage: 50 MG
     Route: 048
     Dates: start: 20190916
  10. TN UNSPECIFIED [Concomitant]
     Indication: Antifungal prophylaxis
     Dosage: 300 MG
     Route: 048
     Dates: start: 20190918
  11. TN UNSPECIFIED [Concomitant]
     Indication: Nausea
     Dosage: 8 MG
     Route: 048
     Dates: start: 20190918
  12. TN UNSPECIFIED [Concomitant]
     Indication: Vomiting
     Dosage: 8 MG
     Route: 042
     Dates: start: 20190918
  13. TN UNSPECIFIED [Concomitant]
     Indication: Bone demineralisation
     Dosage: 500 MG
     Route: 048
     Dates: start: 20190919

REACTIONS (1)
  - Staphylococcal sepsis [Recovered/Resolved]

NARRATIVE: CASE EVENT DATE: 20190926
